FAERS Safety Report 24570868 (Version 2)
Quarter: 2024Q4

REPORT INFORMATION
  Report Type: Spontaneous
  Country: AT (occurrence: AT)
  Receive Date: 20241101
  Receipt Date: 20241105
  Transmission Date: 20250115
  Serious: Yes (Other)
  Sender: ORGANON
  Company Number: AT-ORGANON-O2410AUT002685

PATIENT
  Age: 48 Year
  Sex: Male

DRUGS (4)
  1. FOSAMAX [Suspect]
     Active Substance: ALENDRONATE SODIUM
     Indication: Osteoporosis
     Dosage: UNK
  2. FOSAMAX [Suspect]
     Active Substance: ALENDRONATE SODIUM
     Indication: Vitamin D deficiency
  3. CHOLECALCIFEROL [Suspect]
     Active Substance: CHOLECALCIFEROL
     Dosage: UNK
  4. CALCIUM [Suspect]
     Active Substance: CALCIUM
     Dosage: UNK

REACTIONS (1)
  - Renal failure [Unknown]
